FAERS Safety Report 16282256 (Version 5)
Quarter: 2019Q3

REPORT INFORMATION
  Report Type: Report from Study
  Country: NL (occurrence: NL)
  Receive Date: 20190507
  Receipt Date: 20190820
  Transmission Date: 20191004
  Serious: Yes (Death, Hospitalization)
  Sender: FDA-Public Use
  Company Number: NL-EXELIXIS-XL18419020717

PATIENT
  Age: 62 Year
  Sex: Male

DRUGS (5)
  1. XL184 [Suspect]
     Active Substance: CABOZANTINIB
     Dosage: 60 MG, QD
     Route: 048
     Dates: end: 20190427
  2. PARACETAMOL [Concomitant]
     Active Substance: ACETAMINOPHEN
  3. DICLOFENAC [Concomitant]
     Active Substance: DICLOFENAC
  4. XL184 [Suspect]
     Active Substance: CABOZANTINIB
     Indication: OESOPHAGEAL CARCINOMA
     Dosage: 60 MG, QD
     Route: 048
     Dates: start: 20190404, end: 20190418
  5. TEMAZEPAM. [Concomitant]
     Active Substance: TEMAZEPAM

REACTIONS (2)
  - Euthanasia [Fatal]
  - Malignant neoplasm progression [Unknown]
